FAERS Safety Report 6832701-X (Version None)
Quarter: 2010Q3

REPORT INFORMATION
  Report Type: 
  Country: None (occurrence: None)
  Receive Date: 20100712
  Receipt Date: 20070501
  Transmission Date: 20110219
  Serious: No
  Sender: FDA-Public Use
  Company Number: US-PFIZER INC-2007020273

PATIENT
  Sex: Male
  Weight: 105.2 kg

DRUGS (7)
  1. CHANTIX [Suspect]
     Indication: SMOKING CESSATION THERAPY
     Dates: start: 20070112
  2. ASACOL [Concomitant]
     Indication: COLITIS
  3. LISINOPRIL [Concomitant]
  4. XANAX [Concomitant]
  5. CLOPIDOGREL [Concomitant]
  6. VERAPAMIL [Concomitant]
  7. LIPITOR [Concomitant]
     Indication: BLOOD CHOLESTEROL ABNORMAL

REACTIONS (1)
  - WEIGHT DECREASED [None]
